FAERS Safety Report 10911559 (Version 5)
Quarter: 2019Q4

REPORT INFORMATION
  Report Type: Report from Study
  Country: US (occurrence: US)
  Receive Date: 20150313
  Receipt Date: 20191023
  Transmission Date: 20200122
  Serious: Yes (Other)
  Sender: FDA-Public Use
  Company Number: US-AMGEN-USASP2015021664

PATIENT
  Age: 60 Year
  Sex: Female

DRUGS (3)
  1. ENBREL [Suspect]
     Active Substance: ETANERCEPT
     Dosage: 50 MILLIGRAM, QWK
     Route: 065
     Dates: end: 2019
  2. ENBREL [Suspect]
     Active Substance: ETANERCEPT
     Indication: RHEUMATOID ARTHRITIS
     Dosage: 50 MILLIGRAM, QWK
     Route: 065
     Dates: start: 20101229, end: 20150614
  3. ENBREL [Suspect]
     Active Substance: ETANERCEPT
     Dosage: 50 MILLIGRAM, QWK
     Route: 065
     Dates: start: 2019

REACTIONS (25)
  - Ophthalmic herpes zoster [Unknown]
  - Herpes zoster [Unknown]
  - Headache [Not Recovered/Not Resolved]
  - Depression [Unknown]
  - Dry eye [Unknown]
  - Dizziness [Recovered/Resolved]
  - Inflammation [Unknown]
  - Joint dislocation [Unknown]
  - Scar [Unknown]
  - Rheumatoid arthritis [Unknown]
  - Nodule [Unknown]
  - Foot deformity [Unknown]
  - Visual impairment [Unknown]
  - Insomnia [Unknown]
  - Pruritus [Unknown]
  - Foot fracture [Unknown]
  - Cataract [Unknown]
  - Drug ineffective [Unknown]
  - Rash [Unknown]
  - Pain in extremity [Not Recovered/Not Resolved]
  - Influenza [Unknown]
  - Nausea [Not Recovered/Not Resolved]
  - Skin abrasion [Unknown]
  - Eczema [Unknown]
  - Injection site pain [Recovered/Resolved]

NARRATIVE: CASE EVENT DATE: 2015
